FAERS Safety Report 6761772-4 (Version None)
Quarter: 2010Q2

REPORT INFORMATION
  Report Type: 
  Country: None (occurrence: None)
  Receive Date: 20100609
  Receipt Date: 20100528
  Transmission Date: 20101027
  Serious: Yes (Other)
  Sender: FDA-Public Use
  Company Number: DE-BAYER-201026801GPV

PATIENT
  Sex: Female

DRUGS (1)
  1. MIRENA [Suspect]
     Indication: DRUG USE FOR UNKNOWN INDICATION
     Route: 015
     Dates: start: 20100301

REACTIONS (6)
  - BREAST PAIN [None]
  - FLUID RETENTION [None]
  - HAIR GROWTH ABNORMAL [None]
  - HYPOAESTHESIA FACIAL [None]
  - THROMBOSIS [None]
  - WEIGHT INCREASED [None]
